FAERS Safety Report 25110529 (Version 1)
Quarter: 2025Q1

REPORT INFORMATION
  Report Type: Spontaneous
  Country: HU (occurrence: HU)
  Receive Date: 20250324
  Receipt Date: 20250324
  Transmission Date: 20250409
  Serious: Yes (Hospitalization, Other)
  Sender: Haleon PLC
  Company Number: HU-HALEON-2182192

PATIENT
  Age: 68 Year
  Sex: Male

DRUGS (1)
  1. DICLOFENAC [Suspect]
     Active Substance: DICLOFENAC
     Indication: Bursitis

REACTIONS (10)
  - Acute myocardial infarction [Unknown]
  - Cervical spinal stenosis [Recovered/Resolved]
  - Autoimmune haemolytic anaemia [Unknown]
  - Bradycardia [Unknown]
  - Circulatory collapse [Unknown]
  - Jaundice [Unknown]
  - Oliguria [Unknown]
  - Normochromic normocytic anaemia [Unknown]
  - Left ventricular dysfunction [Unknown]
  - Coronary artery stenosis [Recovered/Resolved]
